FAERS Safety Report 4580798-2 (Version None)
Quarter: 2005Q1

REPORT INFORMATION
  Report Type: 
  Country: None (occurrence: None)
  Receive Date: 20050214
  Receipt Date: 20040604
  Transmission Date: 20050727
  Serious: No
  Sender: FDA-Public Use
  Company Number: US-GLAXOSMITHKLINE-A0513465A

PATIENT
  Age: 32 Year
  Sex: Male

DRUGS (6)
  1. LAMICTAL [Suspect]
     Indication: BIPOLAR DISORDER
     Route: 048
  2. WELLBUTRIN [Concomitant]
  3. EFFEXOR [Concomitant]
  4. XANAX [Concomitant]
  5. IMITREX [Concomitant]
  6. FIORINAL [Concomitant]

REACTIONS (1)
  - ALOPECIA [None]
